FAERS Safety Report 7340968-7 (Version None)
Quarter: 2011Q1

REPORT INFORMATION
  Report Type: 
  Country: None (occurrence: None)
  Receive Date: 20110309
  Receipt Date: 20110228
  Transmission Date: 20110831
  Serious: Yes (Hospitalization)
  Sender: FDA-Public Use
  Company Number: US-ELI_LILLY_AND_COMPANY-CA201102007664

PATIENT
  Sex: Male

DRUGS (14)
  1. HYDROMORPHONE HCL [Concomitant]
     Indication: PAIN
     Dosage: UNK, UNK
     Dates: start: 20110131
  2. SOFLAX [Concomitant]
     Indication: CONSTIPATION
     Dates: start: 20110131
  3. LIPITOR [Concomitant]
     Indication: HYPERCHOLESTEROLAEMIA
     Dosage: UNK, UNK
  4. DOMPERIDONE [Concomitant]
     Indication: PAIN
     Dosage: UNK, UNK
  5. SENOKOT [Concomitant]
     Indication: CONSTIPATION
     Dosage: UNK, UNK
     Dates: start: 20110131
  6. HYDROMORPHONE HCL [Concomitant]
     Indication: PAIN
     Dosage: UNK, UNK
     Dates: start: 20110131
  7. GABAPENTIN [Concomitant]
     Indication: PAIN
     Dosage: UNK, UNK
  8. PANTOLOC [Concomitant]
  9. EZETROL [Concomitant]
     Indication: HYPERCHOLESTEROLAEMIA
  10. METFORMIN [Concomitant]
     Indication: DIABETES MELLITUS
     Dosage: UNK, UNK
  11. GEMCITABINE HYDROCHLORIDE [Suspect]
     Indication: PANCREATIC CARCINOMA
     Dosage: 1490 MG, OTHER
     Route: 065
     Dates: start: 20110216, end: 20110216
  12. PACLITAXEL [Suspect]
     Indication: PANCREATIC CARCINOMA
     Dosage: 187 MG, OTHER
     Route: 065
     Dates: start: 20110216, end: 20110224
  13. DIOVAN [Concomitant]
     Indication: HYPERTENSION
  14. CREON [Concomitant]
     Indication: PANCREATIC ENZYMES DECREASED

REACTIONS (1)
  - CEREBRAL ISCHAEMIA [None]
